FAERS Safety Report 21413287 (Version 1)
Quarter: 2022Q4

REPORT INFORMATION
  Report Type: Spontaneous
  Country: US (occurrence: US)
  Receive Date: 20221006
  Receipt Date: 20221006
  Transmission Date: 20230112
  Serious: Yes (Other)
  Sender: FDA-Public Use
  Company Number: US-SUN PHARMACEUTICAL INDUSTRIES LTD-2022R1-357349

PATIENT
  Age: 17 Year
  Sex: Female

DRUGS (2)
  1. PREDNISONE [Suspect]
     Active Substance: PREDNISONE
     Indication: Pemphigoid
     Route: 048
  2. DAPSONE [Suspect]
     Active Substance: DAPSONE
     Indication: Pemphigoid
     Route: 065

REACTIONS (1)
  - Treatment failure [Unknown]
